FAERS Safety Report 9323456 (Version 1)
Quarter: 2013Q2

REPORT INFORMATION
  Report Type: Spontaneous
  Country: US (occurrence: US)
  Receive Date: 20130603
  Receipt Date: 20130603
  Transmission Date: 20140414
  Serious: Yes (Other)
  Sender: FDA-Public Use
  Company Number: US-PFIZER INC-2013166628

PATIENT
  Age: 56 Year
  Sex: Female
  Weight: 68.03 kg

DRUGS (2)
  1. LYRICA [Suspect]
     Indication: FIBROMYALGIA
     Dosage: ONE IN MORNING, ONE IN AFTERNOON AND TWO CAPSULES IN THE EVENING, 3X/DAY
  2. ESTRADERM [Concomitant]
     Indication: HORMONE THERAPY
     Dosage: UNK
     Route: 062

REACTIONS (1)
  - Depression [Unknown]
